FAERS Safety Report 24448978 (Version 1)
Quarter: 2024Q4

REPORT INFORMATION
  Report Type: Spontaneous
  Country: NL (occurrence: NL)
  Receive Date: 20241017
  Receipt Date: 20241017
  Transmission Date: 20250115
  Serious: Yes (Other)
  Sender: AUROBINDO
  Company Number: NL-FCP-240708-01

PATIENT
  Sex: Female

DRUGS (1)
  1. ETHINYL ESTRADIOL\LEVONORGESTREL [Suspect]
     Active Substance: ETHINYL ESTRADIOL\LEVONORGESTREL
     Indication: Product used for unknown indication
     Dosage: 0.02 MILLIGRAM, ONCE A DAY (1 TABLET PER DAY)
     Route: 048
     Dates: start: 2024

REACTIONS (5)
  - Pregnancy on oral contraceptive [Unknown]
  - Unintended pregnancy [Unknown]
  - Exposure during pregnancy [Unknown]
  - Product use issue [Unknown]
  - Expired product administered [Unknown]

NARRATIVE: CASE EVENT DATE: 20240101
